FAERS Safety Report 7240598-1 (Version None)
Quarter: 2011Q1

REPORT INFORMATION
  Report Type: 
  Country: None (occurrence: None)
  Receive Date: 20110124
  Receipt Date: 20110110
  Transmission Date: 20110831
  Serious: Yes (Hospitalization)
  Sender: FDA-Public Use
  Company Number: RS-NOVOPROD-319781

PATIENT
  Sex: Male
  Weight: 27 kg

DRUGS (2)
  1. NORDITROPIN [Suspect]
     Indication: GROWTH HORMONE DEFICIENCY
     Dosage: 0.8 MG, QD
     Route: 058
     Dates: start: 20080312, end: 20101125
  2. MINIRIN                            /00361901/ [Suspect]
     Indication: DIABETES INSIPIDUS
     Dosage: 1 DOSE, QD
     Route: 048
     Dates: start: 20071023

REACTIONS (3)
  - HYPERLIPIDAEMIA [None]
  - ARTHRALGIA [None]
  - HEADACHE [None]
